FAERS Safety Report 13636078 (Version 1)
Quarter: 2017Q2

REPORT INFORMATION
  Report Type: Spontaneous
  Country: US (occurrence: US)
  Receive Date: 20170608
  Receipt Date: 20170608
  Transmission Date: 20170830
  Serious: Yes (Other)
  Sender: FDA-Public Use
  Company Number: None

PATIENT
  Age: 76 Year
  Sex: Female
  Weight: 68.1 kg

DRUGS (4)
  1. DESEVENLAFAXINE 100MG [Suspect]
     Active Substance: DESVENLAFAXINE
     Indication: MAJOR DEPRESSION
     Route: 048
     Dates: start: 20170508
  2. TEMAZEPAM. [Concomitant]
     Active Substance: TEMAZEPAM
  3. ARMOUR THYROID [Concomitant]
     Active Substance: THYROID, PORCINE
  4. BUSPIRONE [Concomitant]
     Active Substance: BUSPIRONE HYDROCHLORIDE

REACTIONS (3)
  - Affective disorder [None]
  - Condition aggravated [None]
  - Product substitution issue [None]

NARRATIVE: CASE EVENT DATE: 20170517
